FAERS Safety Report 9553368 (Version 1)
Quarter: 2013Q3

REPORT INFORMATION
  Report Type: Report from Study
  Country: DE (occurrence: DE)
  Receive Date: 20130925
  Receipt Date: 20130925
  Transmission Date: 20140515
  Serious: Yes (Hospitalization, Other)
  Sender: FDA-Public Use
  Company Number: DE-ABBVIE-13P-062-1150244-00

PATIENT
  Sex: Female
  Weight: 54 kg

DRUGS (2)
  1. HUMIRA [Suspect]
     Indication: PSORIASIS
     Dates: start: 20121127, end: 20130801
  2. IBUPROFEN [Concomitant]
     Indication: PRODUCT USED FOR UNKNOWN INDICATION
     Dosage: MANY TIMES PER DAY

REACTIONS (5)
  - Iron deficiency anaemia [Recovered/Resolved]
  - Gastric ulcer [Recovered/Resolved]
  - Gastritis [Recovered/Resolved]
  - Gastric mucosa erythema [Recovered/Resolved]
  - Leukaemia [Unknown]
